FAERS Safety Report 8715481 (Version 2)
Quarter: 2012Q4

REPORT INFORMATION
  Report Type: 
  Country: US (occurrence: US)
  Receive Date: 20120809
  Receipt Date: 20121001
  Transmission Date: 20130627
  Serious: Yes (Other)
  Sender: FDA-Public Use
  Company Number: US-ROCHE-1097670

PATIENT
  Sex: Female

DRUGS (5)
  1. XOLAIR [Suspect]
     Indication: ASTHMA
     Route: 058
     Dates: start: 20060718, end: 20090922
  2. ADVAIR [Concomitant]
  3. SINGULAIR [Concomitant]
  4. ALBUTEROL [Concomitant]
  5. XOPENEX HFA [Concomitant]

REACTIONS (6)
  - Dyspnoea [Unknown]
  - Gastroenteritis viral [Unknown]
  - Sinus disorder [Unknown]
  - Cough [Unknown]
  - Unevaluable event [Unknown]
  - Breath sounds abnormal [Unknown]
